FAERS Safety Report 21266478 (Version 4)
Quarter: 2023Q2

REPORT INFORMATION
  Report Type: Spontaneous
  Country: US (occurrence: US)
  Receive Date: 20220829
  Receipt Date: 20230509
  Transmission Date: 20230722
  Serious: No
  Sender: FDA-Public Use
  Company Number: US-BIOGEN-2022BI01149343

PATIENT
  Sex: Male

DRUGS (3)
  1. VUMERITY [Suspect]
     Active Substance: DIROXIMEL FUMARATE
     Indication: Multiple sclerosis
     Route: 050
     Dates: start: 20220810
  2. VUMERITY [Suspect]
     Active Substance: DIROXIMEL FUMARATE
     Route: 050
     Dates: start: 20220803, end: 20220809
  3. VUMERITY [Suspect]
     Active Substance: DIROXIMEL FUMARATE
     Route: 050
     Dates: start: 20220808, end: 20230422

REACTIONS (10)
  - Product dose omission issue [Recovered/Resolved]
  - Multiple sclerosis [Not Recovered/Not Resolved]
  - Hunger [Not Recovered/Not Resolved]
  - Rash pruritic [Unknown]
  - Tongue eruption [Recovered/Resolved]
  - Hypoaesthesia [Recovered/Resolved]
  - Gastric disorder [Recovered/Resolved]
  - Hypersensitivity [Unknown]
  - Erythema [Recovered/Resolved]
  - Hot flush [Recovered/Resolved]

NARRATIVE: CASE EVENT DATE: 20220101
